FAERS Safety Report 15096211 (Version 1)
Quarter: 2018Q2

REPORT INFORMATION
  Report Type: Spontaneous
  Country: US (occurrence: US)
  Receive Date: 20180609
  Receipt Date: 20180609
  Transmission Date: 20180711
  Serious: Yes (Other)
  Sender: FDA-Public Use
  Company Number: None

PATIENT
  Age: 6 Year
  Sex: Male
  Weight: 22.5 kg

DRUGS (5)
  1. ALLERGEX [Concomitant]
  2. MIRALAX [Suspect]
     Active Substance: POLYETHYLENE GLYCOL 3350
     Indication: CONSTIPATION
     Route: 048
     Dates: start: 20130101, end: 20180101
  3. C [Concomitant]
  4. CATAPLEX [Concomitant]
  5. NUK VOCUM [Concomitant]

REACTIONS (1)
  - Anger [None]

NARRATIVE: CASE EVENT DATE: 20140320
